FAERS Safety Report 7955635-6 (Version None)
Quarter: 2011Q4

REPORT INFORMATION
  Report Type: 
  Country: None (occurrence: None)
  Receive Date: 20111204
  Receipt Date: 20111127
  Transmission Date: 20120403
  Serious: Yes (Other)
  Sender: FDA-Public Use
  Company Number: US-RB-030689-11

PATIENT
  Age: 63 Year
  Sex: Male

DRUGS (2)
  1. ANTIHISTAMINE [Concomitant]
     Indication: PRODUCT USED FOR UNKNOWN INDICATION
  2. DELSYM [Suspect]
     Indication: COUGH
     Dosage: PATIENT USED IT A MAX OF 3X/DAY
     Route: 048
     Dates: start: 20111101

REACTIONS (2)
  - BLOOD PRESSURE INCREASED [None]
  - DIZZINESS [None]
